FAERS Safety Report 9345388 (Version 2)
Quarter: 2013Q3

REPORT INFORMATION
  Report Type: Spontaneous
  Country: IT (occurrence: IT)
  Receive Date: 20130613
  Receipt Date: 20130808
  Transmission Date: 20140515
  Serious: Yes (Life-Threatening)
  Sender: FDA-Public Use
  Company Number: IT-RANBAXY-2013R1-69955

PATIENT
  Age: 68 Year
  Sex: Male

DRUGS (2)
  1. AMOXICILLIN [Suspect]
     Indication: TOOTH EXTRACTION
     Dosage: 1 DOSAGE UNIT, COMPLETE
     Route: 048
     Dates: start: 20130410, end: 20130410
  2. MEPIVACAINE HYDROCHLORIDE [Suspect]
     Indication: TOOTH EXTRACTION
     Dosage: 1 DOSAGE UNIT, COMPLETE
     Route: 058
     Dates: start: 20130410, end: 20130410

REACTIONS (3)
  - Generalised erythema [Recovering/Resolving]
  - Hypotension [Recovering/Resolving]
  - Discomfort [Recovering/Resolving]
